FAERS Safety Report 25993510 (Version 1)
Quarter: 2025Q4

REPORT INFORMATION
  Report Type: Spontaneous
  Country: CN (occurrence: CN)
  Receive Date: 20251104
  Receipt Date: 20251104
  Transmission Date: 20260118
  Serious: Yes (Other)
  Sender: SANOFI AVENTIS
  Company Number: CN-SA-2025SA322073

PATIENT
  Age: 63 Year
  Sex: Female
  Weight: 60 kg

DRUGS (1)
  1. ELOXATIN [Suspect]
     Active Substance: OXALIPLATIN
     Indication: Pancreatic carcinoma
     Dosage: 150 MG, 1X
     Route: 041
     Dates: start: 20251020, end: 20251020

REACTIONS (8)
  - Asphyxia [Recovering/Resolving]
  - Palpitations [Recovering/Resolving]
  - Sensation of foreign body [Recovering/Resolving]
  - Panic attack [Recovering/Resolving]
  - Wheezing [Recovering/Resolving]
  - Muscle twitching [Recovering/Resolving]
  - Dyspnoea [Recovering/Resolving]
  - Asthenia [Recovering/Resolving]

NARRATIVE: CASE EVENT DATE: 20251020
